FAERS Safety Report 19395033 (Version 1)
Quarter: 2021Q2

REPORT INFORMATION
  Report Type: Spontaneous
  Country: US (occurrence: US)
  Receive Date: 20210609
  Receipt Date: 20210609
  Transmission Date: 20210717
  Serious: No
  Sender: FDA-Public Use
  Company Number: US-PFIZER INC-2021313701

PATIENT
  Age: 72 Year
  Sex: Female

DRUGS (2)
  1. TOZINAMERAN. [Suspect]
     Active Substance: TOZINAMERAN
     Indication: COVID-19 IMMUNISATION
     Dosage: 1ST DOSE, SINGLE DOSE
     Dates: start: 202102, end: 202102
  2. CELEBREX [Suspect]
     Active Substance: CELECOXIB
     Dosage: 100 MG

REACTIONS (1)
  - Vaccination site erythema [Unknown]

NARRATIVE: CASE EVENT DATE: 202103
